FAERS Safety Report 21786093 (Version 1)
Quarter: 2022Q4

REPORT INFORMATION
  Report Type: Other
  Country: US (occurrence: None)
  Receive Date: 20221228
  Receipt Date: 20221228
  Transmission Date: 20230113
  Serious: Yes (Other)
  Sender: FDA-Public Use
  Company Number: US-ROCHE-3244376

PATIENT
  Age: 53 Year
  Sex: Male
  Weight: 79.450 kg

DRUGS (8)
  1. AVASTIN [Suspect]
     Active Substance: BEVACIZUMAB
     Indication: Retinal vein occlusion
     Dosage: EVERY 4 TO 6 WEEKS IN THE LEFT EYE,LAST AVASTIN DOSE WAS ON 21/NOV/2022
     Route: 050
     Dates: start: 20220711
  2. AVASTIN [Suspect]
     Active Substance: BEVACIZUMAB
     Indication: Macular oedema
     Dosage: INJECTION,
     Route: 050
     Dates: start: 20221121, end: 20221121
  3. BUPRENORPHINE\NALOXONE [Concomitant]
     Active Substance: BUPRENORPHINE\NALOXONE
  4. FELODIPINE [Concomitant]
     Active Substance: FELODIPINE
  5. METOPROLOL [Concomitant]
     Active Substance: METOPROLOL
  6. SPIRONOLACTONE [Concomitant]
     Active Substance: SPIRONOLACTONE
  7. TESTOSTERONE [Concomitant]
     Active Substance: TESTOSTERONE
  8. EYLEA [Concomitant]
     Active Substance: AFLIBERCEPT

REACTIONS (3)
  - Visual impairment [Recovered/Resolved]
  - Intraocular pressure increased [Recovered/Resolved]
  - Off label use [Unknown]

NARRATIVE: CASE EVENT DATE: 20220711
